FAERS Safety Report 22333704 (Version 1)
Quarter: 2023Q2

REPORT INFORMATION
  Report Type: Report from Study
  Country: US (occurrence: US)
  Receive Date: 20230517
  Receipt Date: 20230517
  Transmission Date: 20230721
  Serious: Yes (Hospitalization)
  Sender: FDA-Public Use
  Company Number: US-UPSHER-SMITH LABORATORIES, LLC-2023USL00494

PATIENT
  Age: 66 Year
  Sex: Female

DRUGS (5)
  1. MIDODRINE HYDROCHLORIDE [Suspect]
     Active Substance: MIDODRINE HYDROCHLORIDE
  2. REMODULIN [Suspect]
     Active Substance: TREPROSTINIL
     Indication: Pulmonary arterial hypertension
     Dosage: 0.080 ?G/KG, DELIVERED CONTINUOUSLY VIA CADD MS3 PUMP
     Route: 058
     Dates: start: 20220918
  3. REMODULIN [Suspect]
     Active Substance: TREPROSTINIL
     Dosage: 0.079 ?G/KG, DELIVERED CONTINOUSLY VIA CADD MS3 PUMP
     Route: 058
  4. REVATIO [Concomitant]
     Active Substance: SILDENAFIL CITRATE
  5. LETAIRIS [Concomitant]
     Active Substance: AMBRISENTAN

REACTIONS (3)
  - Hypotension [Unknown]
  - Presyncope [Unknown]
  - Atrial flutter [Unknown]

NARRATIVE: CASE EVENT DATE: 20230401
